FAERS Safety Report 10627058 (Version 3)
Quarter: 2015Q1

REPORT INFORMATION
  Report Type: Report from Study
  Country: US (occurrence: US)
  Receive Date: 20141204
  Receipt Date: 20150127
  Transmission Date: 20150720
  Serious: Yes (Hospitalization)
  Sender: FDA-Public Use
  Company Number: US-EXELIXIS-CABO-14004995

PATIENT
  Age: 38 Year
  Sex: Male

DRUGS (8)
  1. CABOZANTINIB [Suspect]
     Active Substance: CABOZANTINIB
     Indication: THYROID CANCER
     Dosage: 140 MG, QD
     Route: 048
     Dates: start: 20141107, end: 20141126
  2. SYNTHROID [Concomitant]
     Active Substance: LEVOTHYROXINE SODIUM
  3. TUMS [Concomitant]
     Active Substance: CALCIUM CARBONATE
  4. BACLOFEN. [Concomitant]
     Active Substance: BACLOFEN
  5. CABOZANTINIB [Suspect]
     Active Substance: CABOZANTINIB
     Dosage: 100 MG, QD
     Route: 048
     Dates: start: 20141209
  6. CABOZANTINIB [Suspect]
     Active Substance: CABOZANTINIB
     Dosage: 140 MG, QD
     Route: 048
     Dates: start: 201412, end: 201412
  7. ONDANSETRON [Concomitant]
     Active Substance: ONDANSETRON
  8. SENNA [Concomitant]
     Active Substance: SENNA LEAF\SENNOSIDES\SENNOSIDES A AND B

REACTIONS (2)
  - Palmar-plantar erythrodysaesthesia syndrome [Unknown]
  - Pyrexia [Recovered/Resolved]

NARRATIVE: CASE EVENT DATE: 201411
